FAERS Safety Report 7559140-0 (Version None)
Quarter: 2011Q2

REPORT INFORMATION
  Report Type: 
  Country: None (occurrence: None)
  Receive Date: 20110621
  Receipt Date: 20110616
  Transmission Date: 20111010
  Serious: Yes (Hospitalization)
  Sender: FDA-Public Use
  Company Number: IT-PFIZER INC-2011104157

PATIENT
  Age: 2 Year
  Sex: Female

DRUGS (2)
  1. ZITHROMAX [Suspect]
     Indication: BRONCHOPNEUMONIA
     Dosage: 120 MG DAILY
     Dates: start: 20110304, end: 20110309
  2. AUGMENTIN PAEDIATRIC [Concomitant]
     Dosage: 2.5 ML
     Route: 048
     Dates: start: 20110309, end: 20110309

REACTIONS (3)
  - HYPERGLYCAEMIA [None]
  - TONIC CLONIC MOVEMENTS [None]
  - HYPERTONIA [None]
